FAERS Safety Report 9684697 (Version 1)
Quarter: 2013Q4

REPORT INFORMATION
  Report Type: Spontaneous
  Country: US (occurrence: None)
  Receive Date: 20131108
  Receipt Date: 20131108
  Transmission Date: 20140711
  Serious: No
  Sender: FDA-Public Use
  Company Number: 1713747-2013-99974

PATIENT
  Sex: 0

DRUGS (5)
  1. SALINE [Suspect]
     Indication: HAEMODIALYSIS
  2. SALINE [Concomitant]
  3. FRESENIUS DIALYZER [Concomitant]
  4. FRESENIUS TUBING [Concomitant]
  5. FRESENIUS CONCENTRATES [Concomitant]

REACTIONS (1)
  - Cardiac disorder [None]
